FAERS Safety Report 10754861 (Version 3)
Quarter: 2015Q2

REPORT INFORMATION
  Report Type: Report from Study
  Country: GB (occurrence: GB)
  Receive Date: 20150202
  Receipt Date: 20150413
  Transmission Date: 20150821
  Serious: Yes (Other)
  Sender: FDA-Public Use
  Company Number: GB-NWEHEALTH-NWEH776

PATIENT

DRUGS (4)
  1. SERETIDE [Concomitant]
     Active Substance: FLUTICASONE FUROATE\SALMETEROL XINAFOATE
     Indication: CHRONIC OBSTRUCTIVE PULMONARY DISEASE
     Dosage: 500/50 004 BID
     Route: 055
     Dates: start: 20110617, end: 20140527
  2. TIOTROPIUM [Concomitant]
     Active Substance: TIOTROPIUM
     Indication: CHRONIC OBSTRUCTIVE PULMONARY DISEASE
     Dosage: 18 004 OD
     Route: 055
     Dates: start: 20110704, end: 20140527
  3. FLUTICASONE PROPIONATE+SALMETEROL XINAFOATE [Suspect]
     Active Substance: FLUTICASONE PROPIONATE\SALMETEROL XINAFOATE
     Indication: CHRONIC OBSTRUCTIVE PULMONARY DISEASE
     Dosage: 500/50 UG, BID
     Route: 055
     Dates: start: 20140528
  4. TIOTROPIUM [Suspect]
     Active Substance: TIOTROPIUM
     Indication: CHRONIC OBSTRUCTIVE PULMONARY DISEASE
     Dosage: 18 UG, QD
     Route: 055
     Dates: start: 20140528

REACTIONS (2)
  - Arrhythmia [Not Recovered/Not Resolved]
  - Carotid artery stenosis [Not Recovered/Not Resolved]

NARRATIVE: CASE EVENT DATE: 20140617
